FAERS Safety Report 8331851-9 (Version None)
Quarter: 2012Q2

REPORT INFORMATION
  Report Type: 
  Country: None (occurrence: None)
  Receive Date: 20120502
  Receipt Date: 20120424
  Transmission Date: 20120825
  Serious: No
  Sender: FDA-Public Use
  Company Number: US-AMGEN-USASP2011053348

PATIENT
  Age: 45 Year
  Sex: Female
  Weight: 90.89 kg

DRUGS (2)
  1. ENBREL [Suspect]
     Indication: RHEUMATOID ARTHRITIS
     Dosage: 50 MG, QWK
     Route: 058
     Dates: start: 20100701, end: 20110401
  2. ENBREL [Suspect]
     Dosage: 50 MG, QWK
     Route: 058
     Dates: start: 20101001, end: 20120412

REACTIONS (4)
  - SINUSITIS [None]
  - ARTHRITIS [None]
  - SINUS DISORDER [None]
  - SINUS POLYP [None]
